FAERS Safety Report 8632425 (Version 2)
Quarter: 2012Q4

REPORT INFORMATION
  Report Type: 
  Country: US (occurrence: US)
  Receive Date: 20120625
  Receipt Date: 20120912
  Transmission Date: 20130627
  Serious: Yes (Other)
  Sender: FDA-Public Use
  Company Number: PHEH2012US012472

PATIENT
  Age: 32 Year
  Sex: Female

DRUGS (4)
  1. GILENYA [Suspect]
     Indication: MULTIPLE SCLEROSIS
     Dosage: 0.5 mg, QD
     Route: 048
     Dates: start: 201012, end: 201206
  2. VITAMIN D [Concomitant]
     Indication: VITAMIN D DEFICIENCY
     Dosage: 50000 UKN, QW
     Route: 042
  3. AMBIEN [Concomitant]
     Indication: INSOMNIA
     Dosage: 10 mg, QD
     Route: 048
  4. CELEXA [Concomitant]
     Indication: DEPRESSION
     Dosage: 40 mg, QD
     Route: 048

REACTIONS (5)
  - Central nervous system lesion [Unknown]
  - Optic neuritis [Unknown]
  - Visual impairment [Unknown]
  - Blindness unilateral [Recovered/Resolved]
  - Visual acuity reduced [Unknown]
